FAERS Safety Report 19216516 (Version 8)
Quarter: 2021Q4

REPORT INFORMATION
  Report Type: Report from Study
  Country: RU (occurrence: RU)
  Receive Date: 20210505
  Receipt Date: 20211019
  Transmission Date: 20220303
  Serious: Yes (Death, Hospitalization)
  Sender: FDA-Public Use
  Company Number: RU-ROCHE-2814957

PATIENT
  Age: 57 Year
  Sex: Male
  Weight: 83 kg

DRUGS (15)
  1. TIRAGOLUMAB [Suspect]
     Active Substance: TIRAGOLUMAB
     Indication: Small cell lung cancer extensive stage
     Dosage: ON 25/MAR/2021 RECEIVED MOST RECENT DOSE OF BLINDED TIRAGOLUMAB PRIOR TO SERIOUS ADVERSE EVENT ONSET
     Route: 042
     Dates: start: 20201225
  2. ATEZOLIZUMAB [Suspect]
     Active Substance: ATEZOLIZUMAB
     Indication: Small cell lung cancer extensive stage
     Dosage: ON 25/MAR/2021 RECEIVED MOST RECENT DOSE OF ATEZOLIZUMAB PRIOR TO AE/SAE ONSET.
     Route: 041
     Dates: start: 20201225
  3. CARBOPLATIN [Suspect]
     Active Substance: CARBOPLATIN
     Indication: Small cell lung cancer extensive stage
     Dosage: ON 03/MAR/2021, RECEIVED MOST RECENT DOSE OF CARBOPLATIN PRIOR TO AE/SAE ONSET.
     Route: 042
     Dates: start: 20201225
  4. ETOPOSIDE [Suspect]
     Active Substance: ETOPOSIDE
     Indication: Small cell lung cancer extensive stage
     Dosage: DAYS 1, 2 AND 3 OF EACH 21-DAY CYCLE FOR 4 CYCLES (AS PER PROTOCOL)?ON 05/MAR/2021, RECEIVED MOST RE
     Route: 042
     Dates: start: 20201225
  5. LOSARTAN [Concomitant]
     Active Substance: LOSARTAN
     Indication: Hypertension
     Route: 048
     Dates: start: 20201214
  6. BISOPROLOL [Concomitant]
     Active Substance: BISOPROLOL
     Indication: Hypertension
     Route: 048
     Dates: start: 20201210
  7. AMLODIPINE [Concomitant]
     Active Substance: AMLODIPINE BESYLATE
     Indication: Hypertension
     Route: 048
     Dates: start: 20201215
  8. HYDROCHLOROTHIAZIDE [Concomitant]
     Active Substance: HYDROCHLOROTHIAZIDE
     Indication: Hypertension
     Route: 048
     Dates: start: 20201214
  9. PROPAFENONE [Concomitant]
     Active Substance: PROPAFENONE
     Route: 048
     Dates: start: 20210204
  10. AERIUS [Concomitant]
     Indication: Pruritus
     Route: 048
     Dates: start: 20210203, end: 20210225
  11. ONDANSETRON [Concomitant]
     Active Substance: ONDANSETRON
     Dosage: GIVEN FOR PROPHYLAXIS: YES
     Route: 042
     Dates: start: 20210303, end: 20210305
  12. OMEPRAZOLUM [Concomitant]
     Dosage: GIVEN FOR PROPHYLAXIS: YES
     Route: 048
     Dates: start: 20210204, end: 20210418
  13. OMEPRAZOLUM [Concomitant]
     Route: 048
     Dates: start: 20210419
  14. PLATINUM [Concomitant]
     Active Substance: PLATINUM
     Dates: start: 20210514, end: 20210728
  15. ETOPOSIDE [Concomitant]
     Active Substance: ETOPOSIDE
     Dates: start: 20210514, end: 20210728

REACTIONS (1)
  - Posterior reversible encephalopathy syndrome [Not Recovered/Not Resolved]

NARRATIVE: CASE EVENT DATE: 20210327
